FAERS Safety Report 9442344 (Version 1)
Quarter: 2013Q3

REPORT INFORMATION
  Report Type: Spontaneous
  Country: IT (occurrence: IT)
  Receive Date: 20130806
  Receipt Date: 20130806
  Transmission Date: 20140515
  Serious: Yes (Other)
  Sender: FDA-Public Use
  Company Number: IT-ELI_LILLY_AND_COMPANY-IT201308000091

PATIENT
  Age: 46 Year
  Sex: Male

DRUGS (5)
  1. ALIMTA [Suspect]
     Indication: LUNG NEOPLASM MALIGNANT
     Dosage: 648.8 MG, QD
     Route: 042
     Dates: start: 20130308
  2. SOLDESAM [Concomitant]
     Indication: PROPHYLAXIS OF NAUSEA AND VOMITING
     Dosage: 8 MG, UNK
     Route: 042
     Dates: start: 20130308, end: 20130517
  3. ONDANSETRON [Concomitant]
     Indication: PROPHYLAXIS OF NAUSEA AND VOMITING
     Dosage: 8 MG, UNK
     Route: 042
     Dates: start: 20130308, end: 20130517
  4. RANIDIL [Concomitant]
     Dosage: 50 MG, UNK
     Route: 042
     Dates: start: 20130308, end: 20130517
  5. LASIX [Concomitant]
     Dosage: 20 MG, UNK
     Dates: start: 20130308, end: 20130517

REACTIONS (6)
  - Nausea [Unknown]
  - Vomiting [Unknown]
  - Dyspnoea [Unknown]
  - Pain [Unknown]
  - Paraesthesia [Unknown]
  - Fatigue [Unknown]
